FAERS Safety Report 21757407 (Version 1)
Quarter: 2022Q4

REPORT INFORMATION
  Report Type: Spontaneous
  Country: JP (occurrence: JP)
  Receive Date: 20221220
  Receipt Date: 20221220
  Transmission Date: 20230112
  Serious: Yes (Other)
  Sender: FDA-Public Use
  Company Number: JP-JNJFOC-20221235442

PATIENT
  Age: 75 Year
  Sex: Female

DRUGS (20)
  1. RISPERIDONE [Suspect]
     Active Substance: RISPERIDONE
     Indication: Product used for unknown indication
     Route: 048
  2. HALOPERIDOL [Suspect]
     Active Substance: HALOPERIDOL
     Indication: Product used for unknown indication
     Route: 048
  3. LEVOTHYROXINE SODIUM [Suspect]
     Active Substance: LEVOTHYROXINE SODIUM
     Route: 048
  4. AZELNIDIPINE [Suspect]
     Active Substance: AZELNIDIPINE
     Route: 048
  5. DILTIAZEM HYDROCHLORIDE [Suspect]
     Active Substance: DILTIAZEM HYDROCHLORIDE
     Route: 048
  6. ENALAPRIL MALEATE [Suspect]
     Active Substance: ENALAPRIL MALEATE
     Route: 048
  7. URAPIDIL [Suspect]
     Active Substance: URAPIDIL
     Route: 048
  8. TRICHLORMETHIAZIDE [Suspect]
     Active Substance: TRICHLORMETHIAZIDE
     Dosage: 2MG PER DAY
     Route: 048
  9. SPIRONOLACTONE [Suspect]
     Active Substance: SPIRONOLACTONE
     Dosage: 50MG PER DAY
     Route: 048
  10. NICORANDIL [Suspect]
     Active Substance: NICORANDIL
     Route: 048
  11. ESOMEPRAZOLE MAGNESIUM [Suspect]
     Active Substance: ESOMEPRAZOLE MAGNESIUM
     Route: 048
  12. SENNOSIDES A AND B [Suspect]
     Active Substance: SENNOSIDES A AND B
     Route: 048
  13. ETIZOLAM [Suspect]
     Active Substance: ETIZOLAM
     Dosage: 1.5MG PER DAY
     Route: 048
  14. CARBAMAZEPINE [Suspect]
     Active Substance: CARBAMAZEPINE
     Route: 048
  15. TRIHEXYPHENIDYL HYDROCHLORIDE [Suspect]
     Active Substance: TRIHEXYPHENIDYL HYDROCHLORIDE
     Dosage: 4MG PER DAY
     Route: 048
  16. LOXOPROFEN SODIUM DIHYDRATE [Suspect]
     Active Substance: LOXOPROFEN SODIUM DIHYDRATE
     Route: 048
  17. CELECOXIB [Suspect]
     Active Substance: CELECOXIB
     Dosage: 100MG PER DAY
     Route: 048
  18. REBAMIPIDE [Suspect]
     Active Substance: REBAMIPIDE
     Route: 048
  19. METHYLCOBALAMIN [Suspect]
     Active Substance: METHYLCOBALAMIN
     Route: 048
  20. MINODRONIC ACID [Suspect]
     Active Substance: MINODRONIC ACID
     Route: 048

REACTIONS (2)
  - Wernicke^s encephalopathy [Recovering/Resolving]
  - Vitamin B1 deficiency [Unknown]
